FAERS Safety Report 19503293 (Version 3)
Quarter: 2021Q4

REPORT INFORMATION
  Report Type: Other
  Country: US (occurrence: None)
  Receive Date: 20210707
  Receipt Date: 20211217
  Transmission Date: 20220303
  Serious: Yes (Hospitalization)
  Sender: FDA-Public Use
  Company Number: US-ROCHE-2861690

PATIENT
  Sex: Female

DRUGS (11)
  1. ACTEMRA [Suspect]
     Active Substance: TOCILIZUMAB
     Indication: Giant cell arteritis
     Dosage: INJECT 162MG SUBCUTANEOUSLY EVERY OTHER WEEK?162/0.9 MG/ML
     Route: 058
  2. ACTEMRA [Suspect]
     Active Substance: TOCILIZUMAB
  3. ACTEMRA [Suspect]
     Active Substance: TOCILIZUMAB
  4. METHOTREXATE [Concomitant]
     Active Substance: METHOTREXATE
  5. FOLIC ACID [Concomitant]
     Active Substance: FOLIC ACID
  6. PREDNISONE [Concomitant]
     Active Substance: PREDNISONE
  7. PREDNISONE [Concomitant]
     Active Substance: PREDNISONE
  8. GABAPENTIN [Concomitant]
     Active Substance: GABAPENTIN
  9. GABAPENTIN [Concomitant]
     Active Substance: GABAPENTIN
  10. IBU [Concomitant]
     Active Substance: IBUPROFEN
  11. MEDROL [Concomitant]
     Active Substance: METHYLPREDNISOLONE

REACTIONS (2)
  - Nephrolithiasis [Not Recovered/Not Resolved]
  - Kidney infection [Not Recovered/Not Resolved]
